FAERS Safety Report 15141632 (Version 1)
Quarter: 2018Q3

REPORT INFORMATION
  Report Type: Spontaneous
  Country: US (occurrence: US)
  Receive Date: 20180713
  Receipt Date: 20180713
  Transmission Date: 20181010
  Serious: No
  Sender: FDA-Public Use
  Company Number: US-ASTRAZENECA-2018SE78592

PATIENT
  Age: 28037 Day
  Sex: Female
  Weight: 81.6 kg

DRUGS (2)
  1. HUMALOG [Concomitant]
     Active Substance: INSULIN LISPRO
     Indication: GLYCOSYLATED HAEMOGLOBIN INCREASED
     Dosage: FOUR TIMES A DAY
     Dates: start: 20180605
  2. BYDUREON [Suspect]
     Active Substance: EXENATIDE
     Indication: BLOOD GLUCOSE ABNORMAL
     Route: 065
     Dates: start: 20180605

REACTIONS (3)
  - Wrong technique in device usage process [Unknown]
  - Injection site discolouration [Unknown]
  - Injection site haemorrhage [Recovered/Resolved]

NARRATIVE: CASE EVENT DATE: 20180612
